FAERS Safety Report 6470486-X (Version None)
Quarter: 2009Q4

REPORT INFORMATION
  Report Type: 
  Country: None (occurrence: None)
  Receive Date: 20091201
  Receipt Date: 20091118
  Transmission Date: 20100525
  Serious: Yes (Other)
  Sender: FDA-Public Use
  Company Number: DSJ-2009-15415

PATIENT
  Age: 68 Year
  Sex: Female

DRUGS (6)
  1. OLMESARTAN MEDOXOMIL [Suspect]
     Indication: HYPERTENSION
     Dosage: 10 MG, PER ORAL
     Route: 048
     Dates: start: 20070717
  2. CALBLOCK (AZELNIDIPINE) (TABLET) (AZELNIDIPINE) [Suspect]
     Indication: HYPERTENSION
     Dosage: 16 MG, PER ORAL
     Route: 048
     Dates: start: 20070717
  3. LIVALO [Suspect]
     Dosage: 1 MG, PER ORAL
     Route: 048
     Dates: start: 20090629, end: 20091118
  4. ASPIRIN [Concomitant]
  5. METHYCOBAL (MECOBALAMIN) (TABLET) (MECOBALAMIN) [Concomitant]
  6. LIPITOR (ATORVASTATIN CALCIUM) (ATORVASTATIN CALCIUM) [Concomitant]

REACTIONS (2)
  - LACUNAR INFARCTION [None]
  - WHITE BLOOD CELL COUNT DECREASED [None]
